FAERS Safety Report 21720498 (Version 1)
Quarter: 2022Q4

REPORT INFORMATION
  Report Type: Spontaneous
  Country: US (occurrence: US)
  Receive Date: 20221213
  Receipt Date: 20221213
  Transmission Date: 20230112
  Serious: Yes (Hospitalization, Disabling)
  Sender: FDA-Public Use
  Company Number: US-TAKEDA-2022TUS093488

PATIENT
  Age: 76 Year
  Sex: Female

DRUGS (1)
  1. NINLARO [Suspect]
     Active Substance: IXAZOMIB CITRATE
     Indication: Plasma cell myeloma
     Dosage: 3 MILLIGRAM, 1/WEEK
     Route: 048
     Dates: start: 20221004

REACTIONS (1)
  - Fall [Unknown]

NARRATIVE: CASE EVENT DATE: 20221112
